FAERS Safety Report 17057008 (Version 2)
Quarter: 2020Q1

REPORT INFORMATION
  Report Type: Report from Study
  Country: GB (occurrence: GB)
  Receive Date: 20191121
  Receipt Date: 20200110
  Transmission Date: 20200409
  Serious: Yes (Death, Life-Threatening, Hospitalization, Other)
  Sender: FDA-Public Use
  Company Number: GB-AMGEN-GBRCT2019193319

PATIENT
  Age: 36 Year
  Sex: Female
  Weight: 73.2 kg

DRUGS (45)
  1. SYMBICORT [Concomitant]
     Active Substance: BUDESONIDE\FORMOTEROL FUMARATE DIHYDRATE
     Indication: ASTHMA
     Dosage: 2 DOSAGE FORM
     Dates: start: 2014
  2. CARBOCISTEINE [Concomitant]
     Active Substance: CARBOCYSTEINE
     Indication: ASTHMA
     Dosage: 750 MILLIGRAM
     Dates: start: 2014
  3. SALBUTAMOL [Concomitant]
     Active Substance: ALBUTEROL
     Indication: ASTHMA
     Dosage: 200 MICROGRAM
     Dates: start: 2014
  4. SANDO K [POTASSIUM CHLORIDE] [Concomitant]
     Indication: BLOOD POTASSIUM
     Dosage: 940 MILLIGRAM
     Dates: start: 20190923, end: 20190924
  5. MOMETASONE [Concomitant]
     Active Substance: MOMETASONE
     Indication: RASH
     Dosage: UNK, 1 APPLICATION
     Dates: start: 20190918, end: 201910
  6. CETRABEN [PARAFFIN] [Concomitant]
     Indication: DRY SKIN
     Dosage: UNK
     Dates: start: 1998
  7. MONTELUKAST [Concomitant]
     Active Substance: MONTELUKAST SODIUM
     Indication: ASTHMA
     Dosage: 10 MILLIGRAM
     Dates: start: 2014
  8. AZITHROMYCIN ANHYDROUS. [Concomitant]
     Active Substance: AZITHROMYCIN ANHYDROUS
     Indication: ANTIBIOTIC PROPHYLAXIS
     Dosage: 250 MILLIGRAM
     Dates: start: 2014
  9. NICOTINE. [Concomitant]
     Active Substance: NICOTINE
     Indication: SMOKING CESSATION THERAPY
     Dosage: 75 MILLIGRAM
     Dates: start: 2017
  10. NORETHISTERONE [Concomitant]
     Active Substance: NORETHINDRONE
     Indication: MENSTRUAL DISORDER
     Dosage: 10 MILLIGRAM
     Dates: start: 201902
  11. ROMIDEPSIN. [Suspect]
     Active Substance: ROMIDEPSIN
     Indication: T-CELL LYMPHOMA
     Dosage: 17 MILLIGRAM, PER CHEMO REGIM
     Route: 042
     Dates: start: 20190909
  12. AMITRIPTYLIN [Concomitant]
     Active Substance: AMITRIPTYLINE
     Indication: BONE PAIN
     Dosage: 50 MILLIGRAM
     Dates: start: 2011
  13. PARACETAMOL [Concomitant]
     Active Substance: ACETAMINOPHEN
     Indication: BONE PAIN
     Dosage: 1 GRAM
     Dates: start: 2015
  14. ENOXAPARIN [Concomitant]
     Active Substance: ENOXAPARIN
     Indication: THROMBOSIS PROPHYLAXIS
     Dosage: 40 MILLIGRAM
     Dates: start: 20191017, end: 20191029
  15. MAGNESIUM SULFATE. [Concomitant]
     Active Substance: MAGNESIUM SULFATE
     Indication: BLOOD MAGNESIUM DECREASED
     Dosage: 10 MILLIMOLE
     Dates: start: 20191024, end: 20191024
  16. PENTAMIDINE [Concomitant]
     Active Substance: PENTAMIDINE
     Indication: PROPHYLAXIS
     Dosage: 300 MILLIGRAM, Q4W
     Dates: start: 20191004
  17. CARFILZOMIB [Suspect]
     Active Substance: CARFILZOMIB
     Indication: T-CELL LYMPHOMA
     Dosage: 78 MILLIGRAM, PER CHEMO REGIM
     Route: 042
     Dates: start: 20190909
  18. CALCHEW [Concomitant]
     Indication: PROPHYLAXIS
     Dosage: UNK, 1 TABLET
     Dates: start: 2013
  19. ATROVENT [Concomitant]
     Active Substance: IPRATROPIUM BROMIDE
     Indication: ASTHMA
     Dosage: 250 MICROGRAM
     Dates: start: 2014
  20. ORAMORPH SR SUSTAINED RELEASE [Concomitant]
     Active Substance: MORPHINE SULFATE
     Indication: BREAKTHROUGH PAIN
     Dosage: 10 MILLIGRAM
     Dates: start: 2015
  21. LANSOPRAZOLE. [Concomitant]
     Active Substance: LANSOPRAZOLE
     Indication: GASTRITIS PROPHYLAXIS
     Dosage: 30 MILLIGRAM
     Dates: start: 201902
  22. COTRIMOXAZOLE [Concomitant]
     Active Substance: SULFAMETHOXAZOLE\TRIMETHOPRIM
     Dosage: 960 MILLIGRAM
     Dates: start: 201902, end: 20191002
  23. LEVOFLOXACIN. [Concomitant]
     Active Substance: LEVOFLOXACIN
     Indication: SEPSIS
     Dosage: 500 MILLIGRAM
     Dates: start: 20191016, end: 20191112
  24. POTASSIUM DIHYDROGEN PHOSPHATE [Concomitant]
     Active Substance: POTASSIUM PHOSPHATE, MONOBASIC
     Indication: BLOOD POTASSIUM DECREASED
     Dosage: 9 MILLIMOLE
     Dates: start: 20191020, end: 20191020
  25. ALENDRONIC ACID [Concomitant]
     Active Substance: ALENDRONIC ACID
     Indication: OSTEOPOROSIS PROPHYLAXIS
     Dosage: 70 MILLIGRAM Q1W
     Dates: start: 2013
  26. ONDANSETRAN [Concomitant]
     Active Substance: ONDANSETRON HYDROCHLORIDE
     Indication: PREMEDICATION
     Dosage: 8 MILLIGRAM
     Dates: start: 20190909
  27. SLOW K [Concomitant]
     Active Substance: POTASSIUM CHLORIDE
     Indication: PROPHYLAXIS
     Dosage: 600 MILLIGRAM
     Dates: start: 20190907, end: 20191023
  28. VANCOMYCIN [Concomitant]
     Active Substance: VANCOMYCIN
     Indication: SEPSIS
     Dosage: 1 GRAM
     Dates: start: 20191017, end: 20191019
  29. BETNOVATE [Concomitant]
     Active Substance: BETAMETHASONE
     Indication: SKIN LESION
     Dosage: UNK, 1 APPLICATION
     Dates: start: 20191019
  30. HYDROXYZINE [Concomitant]
     Active Substance: HYDROXYZINE HYDROCHLORIDE
     Indication: PRURITUS
     Dosage: 25-50 MILLIGRAM
     Dates: start: 1998, end: 20191004
  31. PREGABALIN. [Concomitant]
     Active Substance: PREGABALIN
     Indication: BONE PAIN
     Dosage: 100 MILLIGRAM
     Dates: start: 2015
  32. ZOPICLONE [Concomitant]
     Active Substance: ZOPICLONE
     Indication: INSOMNIA
     Dosage: 3.75 MILLIGRAM
     Dates: start: 2015
  33. ALLOPURINOL. [Concomitant]
     Active Substance: ALLOPURINOL
     Indication: RENAL DISORDER PROPHYLAXIS
     Dosage: 300 MILLIGRAM
     Dates: start: 20190910, end: 20191017
  34. ONDANSETRAN [Concomitant]
     Active Substance: ONDANSETRON HYDROCHLORIDE
     Indication: NAUSEA
  35. HYDROCORTISONE. [Concomitant]
     Active Substance: HYDROCORTISONE
     Indication: SEPSIS
     Dosage: 20-30 MILLIGRAM
     Dates: start: 20191019, end: 20191105
  36. BETNOVATE [Concomitant]
     Active Substance: BETAMETHASONE
     Indication: RASH
  37. TAMIFLU [Concomitant]
     Active Substance: OSELTAMIVIR PHOSPHATE
     Indication: ANTIVIRAL PROPHYLAXIS
     Dosage: 756 MILLIGRAM
     Dates: start: 20191021, end: 20191030
  38. VINBLASTINE [Suspect]
     Active Substance: VINBLASTINE
     Indication: T-CELL LYMPHOMA
     Dosage: 10 MILLIGRAM, Q2WK
     Route: 042
     Dates: start: 20191114, end: 20191114
  39. ZOMORPH [Concomitant]
     Active Substance: MORPHINE SULFATE
     Indication: BONE PAIN
     Dosage: 50 MILLIGRAM
     Dates: start: 2015
  40. HYOSCINE BUTYLBROMIDE [Concomitant]
     Active Substance: BUTYLSCOPOLAMINE BROMIDE
     Indication: IRRITABLE BOWEL SYNDROME
     Dosage: 20 MILLIGRAM
     Dates: start: 2018
  41. ACYCLOVIR [ACICLOVIR] [Concomitant]
     Active Substance: ACYCLOVIR
     Indication: ANTIVIRAL PROPHYLAXIS
     Dosage: 400 MILLIGRAM
     Dates: start: 201902
  42. DOCUSATE SODIUM. [Concomitant]
     Active Substance: DOCUSATE SODIUM
     Indication: CONSTIPATION PROPHYLAXIS
     Dosage: 200 MILLIGRAM
     Dates: start: 201902
  43. METOCLOPRAMIDE. [Concomitant]
     Active Substance: METOCLOPRAMIDE
     Indication: NAUSEA
     Dosage: 10 MILLIGRAM
     Dates: start: 201902
  44. DEXAMETHASONE. [Concomitant]
     Active Substance: DEXAMETHASONE
     Indication: PREMEDICATION
     Dosage: 4-8 MILLIGRAM
     Dates: start: 20190821, end: 20191025
  45. FLUCONAZOLE. [Concomitant]
     Active Substance: FLUCONAZOLE
     Indication: ANTIFUNGAL PROPHYLAXIS
     Dosage: 50 MILLIGRAM
     Dates: start: 20190919, end: 20191106

REACTIONS (1)
  - Pneumonia [Fatal]

NARRATIVE: CASE EVENT DATE: 20191117
